FAERS Safety Report 8471935-8 (Version None)
Quarter: 2012Q2

REPORT INFORMATION
  Report Type: 
  Country: None (occurrence: None)
  Receive Date: 20120627
  Receipt Date: 20120619
  Transmission Date: 20120825
  Serious: Yes (Other)
  Sender: FDA-Public Use
  Company Number: CN-JNJFOC-20120610669

PATIENT
  Age: 42 Year
  Sex: Female

DRUGS (3)
  1. TYLENOL COLD [Suspect]
     Indication: HEADACHE
     Dosage: 2 IN THE AFTERNOON AND LATER 1 MORE IN THE EVENING
     Route: 048
     Dates: start: 20120618
  2. TYLENOL COLD [Suspect]
     Indication: ASTHENIA
     Dosage: 2 IN THE AFTERNOON AND LATER 1 MORE IN THE EVENING
     Route: 048
     Dates: start: 20120618
  3. TYLENOL COLD [Suspect]
     Indication: NASOPHARYNGITIS
     Dosage: 2 IN THE AFTERNOON AND LATER 1 MORE IN THE EVENING
     Route: 048
     Dates: start: 20120618

REACTIONS (2)
  - URINARY TRACT INFECTION [None]
  - HYPERHIDROSIS [None]
